FAERS Safety Report 6079131-9 (Version None)
Quarter: 2009Q1

REPORT INFORMATION
  Report Type: 
  Country: None (occurrence: None)
  Receive Date: 20090216
  Receipt Date: 20090206
  Transmission Date: 20090719
  Serious: Yes (Hospitalization)
  Sender: FDA-Public Use
  Company Number: A0760218A

PATIENT
  Age: 65 Year
  Sex: Female
  Weight: 104.5 kg

DRUGS (6)
  1. AVANDIA [Suspect]
     Dosage: 4MG PER DAY
     Route: 048
     Dates: start: 20060317
  2. LABETALOL [Concomitant]
     Dates: start: 20050101
  3. COREG [Concomitant]
     Dates: start: 20040101
  4. CATAPRES [Concomitant]
  5. PHOSLO [Concomitant]
  6. CARDIZEM [Concomitant]

REACTIONS (3)
  - CARDIAC FAILURE CONGESTIVE [None]
  - CARDIOVASCULAR DISORDER [None]
  - MYOCARDIAL INFARCTION [None]
